FAERS Safety Report 4523104-1 (Version None)
Quarter: 2004Q4

REPORT INFORMATION
  Report Type: 
  Country: None (occurrence: None)
  Receive Date: 20041208
  Receipt Date: 20041125
  Transmission Date: 20050328
  Serious: Yes (Hospitalization)
  Sender: FDA-Public Use
  Company Number: 2004101126

PATIENT
  Sex: Female

DRUGS (2)
  1. LATANOPROST [Suspect]
     Indication: GLAUCOMA
     Dosage: 1 DROP (1 DROP), INTRAOCULAR
     Route: 031
     Dates: start: 20010109
  2. COSOPT (CORZOLAMIDE HYDROCHLORIDE, TIMOLOL MALEATE) [Concomitant]

REACTIONS (1)
  - CATARACT OPERATION [None]
